FAERS Safety Report 6471522-7 (Version None)
Quarter: 2009Q4

REPORT INFORMATION
  Report Type: 
  Country: None (occurrence: None)
  Receive Date: 20091203
  Receipt Date: 20080506
  Transmission Date: 20100525
  Serious: Yes (Life-Threatening, Hospitalization)
  Sender: FDA-Public Use
  Company Number: DE-ELI_LILLY_AND_COMPANY-DE200803000156

PATIENT
  Sex: Female

DRUGS (5)
  1. CYMBALTA [Suspect]
     Indication: DEPRESSION
     Dosage: 30 MG, DAILY (1/D)
     Route: 048
     Dates: start: 20051101, end: 20060901
  2. CYMBALTA [Suspect]
     Dosage: 30 MG, DAILY (1/D)
     Route: 065
     Dates: start: 20061106, end: 20061101
  3. NOVANOX [Concomitant]
     Indication: SLEEP DISORDER
     Dosage: UNK, INTERMITTENT
     Route: 065
     Dates: start: 20030101, end: 20070101
  4. ZOLPIDEM [Concomitant]
     Indication: AGITATION
     Dosage: UNK, UNKNOWN
     Route: 065
     Dates: start: 20060801, end: 20070101
  5. L-THYROXIN [Concomitant]
     Indication: HYPOTHYROIDISM
     Dosage: 125 UG, UNKNOWN
     Route: 065
     Dates: start: 19980101

REACTIONS (1)
  - BILIARY CIRRHOSIS PRIMARY [None]
